FAERS Safety Report 18509791 (Version 2)
Quarter: 2020Q4

REPORT INFORMATION
  Report Type: Other
  Country: US (occurrence: US)
  Receive Date: 20201117
  Receipt Date: 20201117
  Transmission Date: 20210114
  Serious: Yes (Other)
  Sender: FDA-Public Use
  Company Number: US-ROCHE-2714160

PATIENT
  Sex: Male

DRUGS (1)
  1. ALECENSA [Suspect]
     Active Substance: ALECTINIB HYDROCHLORIDE
     Indication: LUNG NEOPLASM MALIGNANT
     Dosage: TAKE 6 CAPSULE(S) BY MOUTH TWICE A DAY WITH MEALS
     Route: 048

REACTIONS (2)
  - Blood creatine phosphokinase increased [Unknown]
  - Deafness unilateral [Unknown]
